FAERS Safety Report 17057393 (Version 1)
Quarter: 2019Q4

REPORT INFORMATION
  Report Type: Spontaneous
  Country: US (occurrence: US)
  Receive Date: 20191121
  Receipt Date: 20191121
  Transmission Date: 20200122
  Serious: No
  Sender: FDA-Public Use
  Company Number: US-BAYER-2019-203731

PATIENT
  Age: 27 Year
  Sex: Male
  Weight: 81.5 kg

DRUGS (1)
  1. ALEVE [Suspect]
     Active Substance: NAPROXEN SODIUM
     Indication: NECK PAIN
     Dosage: UNK UNK, BIW
     Route: 048
     Dates: start: 201910

REACTIONS (1)
  - Drug effective for unapproved indication [None]

NARRATIVE: CASE EVENT DATE: 2019
